FAERS Safety Report 5031105-2 (Version None)
Quarter: 2006Q2

REPORT INFORMATION
  Report Type: 
  Country: None (occurrence: None)
  Receive Date: 20060619
  Receipt Date: 20060619
  Transmission Date: 20061013
  Serious: No
  Sender: FDA-Public Use
  Company Number: None

PATIENT
  Age: 65 Year
  Weight: 90.7194 kg

DRUGS (1)
  1. ZETIA [Suspect]
     Indication: HYPERCHOLESTEROLAEMIA
     Dosage: 1 DAILY PO
     Route: 048
     Dates: start: 20060501, end: 20060615

REACTIONS (8)
  - ARTHRALGIA [None]
  - CHILLS [None]
  - DIARRHOEA [None]
  - INFLUENZA [None]
  - LETHARGY [None]
  - MUSCLE SPASMS [None]
  - PAIN [None]
  - PYREXIA [None]
